FAERS Safety Report 8857226 (Version 1)
Quarter: 2012Q4

REPORT INFORMATION
  Report Type: 
  Country: CA (occurrence: CA)
  Receive Date: 20121024
  Receipt Date: 20121024
  Transmission Date: 20130627
  Serious: Yes (Hospitalization)
  Sender: FDA-Public Use
  Company Number: CA-TEVA-366129USA

PATIENT
  Age: 54 Year
  Sex: Female

DRUGS (3)
  1. PROPRANOLOL [Suspect]
     Dosage: 10 Milligram Daily;
     Route: 048
     Dates: start: 201201, end: 201209
  2. ZOPICLONE [Concomitant]
     Dosage: 7.5 Milligram Daily; hs
  3. HYDROXYZINE [Concomitant]
     Dosage: 25 mg at sleep as needed

REACTIONS (3)
  - Allergy to chemicals [Unknown]
  - Auricular swelling [Unknown]
  - Pharyngeal oedema [Unknown]
